FAERS Safety Report 5570786-1 (Version None)
Quarter: 2007Q4

REPORT INFORMATION
  Report Type: 
  Country: None (occurrence: None)
  Receive Date: 20071221
  Receipt Date: 20071212
  Transmission Date: 20080405
  Serious: Yes (Hospitalization, Other)
  Sender: FDA-Public Use
  Company Number: US-ELI_LILLY_AND_COMPANY-US200712000681

PATIENT
  Sex: Female

DRUGS (8)
  1. FORTEO [Suspect]
     Indication: OSTEOPOROSIS
     Dosage: UNK, UNK
     Dates: start: 20051201, end: 20070501
  2. FORTEO [Suspect]
     Dates: start: 20070501
  3. CELEBREX [Concomitant]
     Indication: ARTHRITIS
  4. TENORMIN [Concomitant]
     Indication: HYPERTENSION
     Dosage: 100 MG, EACH MORNING
  5. ASPIRIN CHILDREN [Concomitant]
     Dosage: 1 D/F, DAILY (1/D)
  6. NORVASC [Concomitant]
  7. NEXIUM [Concomitant]
     Indication: GASTROOESOPHAGEAL REFLUX DISEASE
     Dosage: 1 D/F, DAILY (1/D)
  8. CALCIUM W/VITAMIN D NOS [Concomitant]
     Dosage: 1200 MG, DAILY (1/D)

REACTIONS (8)
  - BONE DISORDER [None]
  - DIVERTICULITIS [None]
  - MEDICATION ERROR [None]
  - MEMORY IMPAIRMENT [None]
  - MOBILITY DECREASED [None]
  - NECK PAIN [None]
  - RASH [None]
  - ROTATOR CUFF SYNDROME [None]
